FAERS Safety Report 6999638-7 (Version None)
Quarter: 2010Q3

REPORT INFORMATION
  Report Type: 
  Country: None (occurrence: None)
  Receive Date: 20100920
  Receipt Date: 20091216
  Transmission Date: 20110219
  Serious: No
  Sender: FDA-Public Use
  Company Number: US-ASTRAZENECA-2009SE32413

PATIENT
  Sex: Male
  Weight: 86.2 kg

DRUGS (5)
  1. SEROQUEL [Suspect]
     Route: 048
     Dates: start: 20080101, end: 20091105
  2. IBUPROFEN [Concomitant]
  3. VYTORIN [Concomitant]
  4. REFLUX MEDICINE [Concomitant]
  5. HTN MEDICINE [Concomitant]

REACTIONS (7)
  - AMNESIA [None]
  - DECREASED APPETITE [None]
  - DRUG DOSE OMISSION [None]
  - FEELING ABNORMAL [None]
  - INSOMNIA [None]
  - NERVOUSNESS [None]
  - WEIGHT DECREASED [None]
